FAERS Safety Report 5749018-7 (Version None)
Quarter: 2008Q2

REPORT INFORMATION
  Report Type: 
  Country: None (occurrence: None)
  Receive Date: 20080527
  Receipt Date: 20080514
  Transmission Date: 20081010
  Serious: Yes (Hospitalization)
  Sender: FDA-Public Use
  Company Number: AR-ELI_LILLY_AND_COMPANY-AR200805002972

PATIENT
  Sex: Female

DRUGS (5)
  1. GEMCITABINE HCL [Suspect]
     Indication: BREAST CANCER METASTATIC
     Dosage: 1000 MG/M2, OTHER
     Route: 042
     Dates: start: 20080428
  2. VINFLUNINE [Suspect]
     Indication: BREAST CANCER METASTATIC
     Dosage: 320 MG/M2, OTHER
     Route: 042
     Dates: start: 20080428
  3. METOCLOPRAMIDE [Concomitant]
     Dosage: UNK, UNKNOWN
     Route: 065
     Dates: start: 20080506
  4. FILGRASTIM [Concomitant]
     Dosage: UNK, UNKNOWN
     Route: 065
     Dates: start: 20080506
  5. DULCOLAX [Concomitant]
     Dosage: UNK, UNKNOWN
     Route: 065
     Dates: start: 20080506

REACTIONS (1)
  - NEUTROPENIC INFECTION [None]
